FAERS Safety Report 8291179-2 (Version None)
Quarter: 2012Q2

REPORT INFORMATION
  Report Type: 
  Country: None (occurrence: None)
  Receive Date: 20120417
  Receipt Date: 20120410
  Transmission Date: 20120825
  Serious: Yes (Hospitalization)
  Sender: FDA-Public Use
  Company Number: US-MERCK-1109USA03242

PATIENT
  Age: 57 Year
  Sex: Female
  Weight: 76 kg

DRUGS (11)
  1. FOSAMAX PLUS D [Suspect]
     Route: 048
     Dates: start: 20090415, end: 20090604
  2. OMEGA-3 MARINE TRIGLYCERIDES [Concomitant]
     Route: 048
  3. FOSAMAX PLUS D [Suspect]
     Indication: OSTEOPENIA
     Route: 048
     Dates: start: 20070525, end: 20090414
  4. ASCORBIC ACID [Concomitant]
     Route: 048
  5. VITAMIN B COMPLEX [Concomitant]
     Route: 048
  6. CALCIUM CITRATE [Concomitant]
     Route: 048
  7. VITAMIN E [Concomitant]
     Route: 065
  8. FOSAMAX [Suspect]
     Route: 048
     Dates: start: 20040325, end: 20070325
  9. ACTONEL [Suspect]
     Indication: OSTEOPENIA
     Route: 048
     Dates: start: 20090605, end: 20110110
  10. FOSAMAX [Suspect]
     Indication: OSTEOPENIA
     Route: 048
     Dates: start: 20010504, end: 20011118
  11. VITAMIN D (UNSPECIFIED) [Concomitant]
     Route: 048

REACTIONS (15)
  - MUSCLE SPASMS [None]
  - ADVERSE EVENT [None]
  - BUNION [None]
  - FEMUR FRACTURE [None]
  - SPINAL CORD COMPRESSION [None]
  - VITAMIN D DEFICIENCY [None]
  - INSOMNIA [None]
  - BLOOD CHOLESTEROL INCREASED [None]
  - CARDIAC DISORDER [None]
  - GASTROOESOPHAGEAL REFLUX DISEASE [None]
  - THYROID DISORDER [None]
  - FRACTURE DELAYED UNION [None]
  - ANAEMIA POSTOPERATIVE [None]
  - ROTATOR CUFF SYNDROME [None]
  - GALLBLADDER DISORDER [None]
